FAERS Safety Report 11527644 (Version 1)
Quarter: 2015Q3

REPORT INFORMATION
  Report Type: Spontaneous
  Country: US (occurrence: US)
  Receive Date: 20150903
  Receipt Date: 20150903
  Transmission Date: 20151125
  Serious: No
  Sender: FDA-Public Use
  Company Number: US-ELI_LILLY_AND_COMPANY-US200905000161

PATIENT
  Age: 45 Year
  Sex: Female

DRUGS (2)
  1. HUMALOG [Suspect]
     Active Substance: INSULIN LISPRO
     Dosage: UNK, DAILY (1/D)
     Route: 058
     Dates: start: 2000
  2. BYETTA [Concomitant]
     Active Substance: EXENATIDE
     Dosage: UNK, UNK
     Dates: start: 200903

REACTIONS (4)
  - Blood glucose decreased [Unknown]
  - Drug ineffective [Recovered/Resolved]
  - Malaise [Unknown]
  - Blood glucose increased [Recovered/Resolved]

NARRATIVE: CASE EVENT DATE: 200904
